FAERS Safety Report 5300528-6 (Version None)
Quarter: 2007Q2

REPORT INFORMATION
  Report Type: 
  Country: None (occurrence: None)
  Receive Date: 20070413
  Receipt Date: 20070413
  Transmission Date: 20071010
  Serious: Yes (Life-Threatening, Hospitalization)
  Sender: FDA-Public Use
  Company Number: None

PATIENT
  Age: 53 Month
  Sex: Female
  Weight: 68.0396 kg

DRUGS (2)
  1. PEGASIS 180 MCG SQ / WEEKLY ROCHE [Suspect]
     Indication: HEPATITIS C
     Dates: start: 20060815, end: 20061127
  2. RIBAVIRIN [Suspect]

REACTIONS (11)
  - CAUSTIC INJURY [None]
  - CHEST PAIN [None]
  - DEAFNESS [None]
  - DYSPNOEA [None]
  - FATIGUE [None]
  - OEDEMA [None]
  - PRURITUS [None]
  - RASH [None]
  - SKIN DISCOLOURATION [None]
  - TREMOR [None]
  - VISION BLURRED [None]
